FAERS Safety Report 5020898-6 (Version None)
Quarter: 2006Q2

REPORT INFORMATION
  Report Type: 
  Country: None (occurrence: None)
  Receive Date: 20060602
  Receipt Date: 20060525
  Transmission Date: 20061013
  Serious: Yes (Other)
  Sender: FDA-Public Use
  Company Number: 2006068077

PATIENT
  Age: 36 Year
  Sex: Male
  Weight: 90.7194 kg

DRUGS (2)
  1. BENADRYL ALLERGY SINUS HEADACHE (DIPHENHYDRAMINE, PARACETAMOL, PSEUDOE [Suspect]
     Indication: SINUS DISORDER
     Dosage: 12 TO 18 TABLETS ONCE A DAY, ORAL
     Route: 048
     Dates: start: 20050101, end: 20060501
  2. DIPHENHYDRAMINE/PARACETAMOL/PHENYLEPHRINE (DIPHENHYDRAMINE, PARACETAMO [Concomitant]

REACTIONS (5)
  - COMMUNICATION DISORDER [None]
  - HEADACHE [None]
  - INCORRECT DOSE ADMINISTERED [None]
  - LETHARGY [None]
  - PERSONALITY CHANGE [None]
